FAERS Safety Report 23894682 (Version 1)
Quarter: 2024Q2

REPORT INFORMATION
  Report Type: Spontaneous
  Country: US (occurrence: None)
  Receive Date: 20240524
  Receipt Date: 20240524
  Transmission Date: 20240715
  Serious: No
  Sender: FDA-Public Use
  Company Number: US-ROCHE-3392774

PATIENT
  Sex: Female
  Weight: 79.45 kg

DRUGS (5)
  1. OCREVUS [Suspect]
     Active Substance: OCRELIZUMAB
     Indication: Relapsing-remitting multiple sclerosis
     Route: 042
     Dates: start: 20180802
  2. KEPPRA [Concomitant]
     Active Substance: LEVETIRACETAM
  3. LYRICA [Concomitant]
     Active Substance: PREGABALIN
  4. VENLAFAXINE HYDROCHLORIDE [Concomitant]
     Active Substance: VENLAFAXINE HYDROCHLORIDE
  5. PROVIGIL [Concomitant]
     Active Substance: MODAFINIL

REACTIONS (1)
  - Multiple sclerosis relapse [Unknown]
